FAERS Safety Report 4390281-5 (Version None)
Quarter: 2004Q3

REPORT INFORMATION
  Report Type: 
  Country: None (occurrence: None)
  Receive Date: 20040706
  Receipt Date: 20040625
  Transmission Date: 20050211
  Serious: Yes (Other)
  Sender: FDA-Public Use
  Company Number: JP-ROCHE-372380

PATIENT
  Age: 37 Year
  Sex: Female

DRUGS (3)
  1. TAMIFLU [Suspect]
     Route: 048
     Dates: start: 20040526, end: 20040530
  2. MEIACT [Concomitant]
     Dates: start: 20040526
  3. LOXONIN [Concomitant]

REACTIONS (1)
  - PSYCHIATRIC SYMPTOM [None]
